FAERS Safety Report 10100942 (Version 3)
Quarter: 2014Q2

REPORT INFORMATION
  Report Type: Spontaneous
  Country: JP (occurrence: JP)
  Receive Date: 20140424
  Receipt Date: 20140618
  Transmission Date: 20141212
  Serious: Yes (Hospitalization)
  Sender: FDA-Public Use
  Company Number: JP-MERCK-1404JPN011893

PATIENT
  Age: 81 Year
  Sex: Female

DRUGS (9)
  1. GLACTIV [Suspect]
     Indication: TYPE 2 DIABETES MELLITUS
     Dosage: 50 MG, QAM
     Route: 048
     Dates: start: 201201, end: 201312
  2. PRAVASTATIN SODIUM [Concomitant]
  3. PRORENAL [Concomitant]
  4. AMLODIN (AMLODIPINE BESYLATE) [Concomitant]
  5. DIOVAN [Concomitant]
  6. PARIET [Concomitant]
  7. BREDININ [Concomitant]
  8. ERISPAN [Concomitant]
  9. ETIZOLAM [Concomitant]
     Dosage: UNK
     Dates: start: 20130109

REACTIONS (1)
  - Interstitial lung disease [Not Recovered/Not Resolved]
